FAERS Safety Report 10603213 (Version 1)
Quarter: 2014Q4

REPORT INFORMATION
  Report Type: Report from Study
  Country: BR (occurrence: BR)
  Receive Date: 20141124
  Receipt Date: 20141124
  Transmission Date: 20150529
  Serious: Yes (Other)
  Sender: FDA-Public Use
  Company Number: BR-ABBVIE-14K-020-1310834-00

PATIENT
  Age: 70 Year
  Sex: Female
  Weight: 51 kg

DRUGS (3)
  1. HUMIRA [Suspect]
     Active Substance: ADALIMUMAB
     Indication: RHEUMATOID ARTHRITIS
     Route: 058
     Dates: start: 20130104
  2. PREDNISONE. [Concomitant]
     Active Substance: PREDNISONE
     Indication: PAIN
     Route: 048
     Dates: start: 20090101
  3. CIMELIDE [Concomitant]
     Indication: PAIN
     Route: 048
     Dates: start: 20140901

REACTIONS (4)
  - Bone pain [Recovered/Resolved]
  - Bone pain [Not Recovered/Not Resolved]
  - Osteoarthritis [Unknown]
  - Weight increased [Unknown]

NARRATIVE: CASE EVENT DATE: 201310
